FAERS Safety Report 25183615 (Version 1)
Quarter: 2025Q2

REPORT INFORMATION
  Report Type: Spontaneous
  Country: US (occurrence: None)
  Receive Date: 20250409
  Receipt Date: 20250409
  Transmission Date: 20250716
  Serious: Yes (Death)
  Sender: FDA-CTU
  Company Number: None

PATIENT
  Age: 58 Year
  Sex: Female
  Weight: 102.6 kg

DRUGS (1)
  1. FERAHEME [Suspect]
     Active Substance: FERUMOXYTOL NON-STOICHIOMETRIC MAGNETITE
     Indication: Iron deficiency anaemia
     Route: 042
     Dates: start: 20250409, end: 20250409

REACTIONS (7)
  - Infusion related reaction [None]
  - Dyspnoea [None]
  - Pallor [None]
  - Drug ineffective [None]
  - Agonal respiration [None]
  - Cyanosis [None]
  - Pulse absent [None]

NARRATIVE: CASE EVENT DATE: 20250409
